FAERS Safety Report 4696350-4 (Version None)
Quarter: 2005Q2

REPORT INFORMATION
  Report Type: 
  Country: None (occurrence: None)
  Receive Date: 20050620
  Receipt Date: 20050603
  Transmission Date: 20051028
  Serious: Yes (Other)
  Sender: FDA-Public Use
  Company Number: 214102

PATIENT
  Age: 57 Year
  Sex: Male
  Weight: 75.3 kg

DRUGS (4)
  1. RITUXAN [Suspect]
     Indication: NON-HODGKIN'S LYMPHOMA
     Dosage: SEE IMAGE
     Route: 042
     Dates: end: 20050125
  2. RITUXAN [Suspect]
     Indication: NON-HODGKIN'S LYMPHOMA
     Dosage: SEE IMAGE
     Route: 042
     Dates: start: 20030204
  3. FLUDARABINE PHOSPHATE [Concomitant]
  4. MITOXANTRONE [Concomitant]

REACTIONS (4)
  - AMNESIA [None]
  - NEUROLOGICAL SYMPTOM [None]
  - NEUROPATHY PERIPHERAL [None]
  - SUICIDAL IDEATION [None]
